FAERS Safety Report 25988816 (Version 1)
Quarter: 2025Q4

REPORT INFORMATION
  Report Type: Spontaneous
  Country: TW (occurrence: TW)
  Receive Date: 20251103
  Receipt Date: 20251103
  Transmission Date: 20260117
  Serious: Yes (Death, Hospitalization, Other)
  Sender: ASTELLAS
  Company Number: TW-ASTELLAS-2025-AER-060379

PATIENT
  Age: 68 Year
  Sex: Male

DRUGS (18)
  1. PADCEV [Suspect]
     Active Substance: ENFORTUMAB VEDOTIN-EJFV
     Indication: Transitional cell carcinoma
     Dosage: =} 60 MG
     Route: 065
     Dates: start: 20231207
  2. PADCEV [Suspect]
     Active Substance: ENFORTUMAB VEDOTIN-EJFV
     Dosage: =} 80 MG
     Route: 065
     Dates: start: 20231214
  3. PADCEV [Suspect]
     Active Substance: ENFORTUMAB VEDOTIN-EJFV
     Dosage: =} 90 MG
     Route: 065
     Dates: start: 20231221
  4. PADCEV [Suspect]
     Active Substance: ENFORTUMAB VEDOTIN-EJFV
     Dosage: =} 90 MG
     Route: 065
     Dates: start: 20240111, end: 20240118
  5. PADCEV [Suspect]
     Active Substance: ENFORTUMAB VEDOTIN-EJFV
     Dosage: =} 90 MG
     Route: 065
     Dates: start: 20240201
  6. PADCEV [Suspect]
     Active Substance: ENFORTUMAB VEDOTIN-EJFV
     Dosage: =} 90 MG
     Route: 065
     Dates: start: 20240208
  7. PADCEV [Suspect]
     Active Substance: ENFORTUMAB VEDOTIN-EJFV
     Dosage: =} 90 MG
     Route: 065
     Dates: start: 20240215
  8. PADCEV [Suspect]
     Active Substance: ENFORTUMAB VEDOTIN-EJFV
     Dosage: =} 90 MG
     Route: 065
     Dates: start: 20240229, end: 20240307
  9. PADCEV [Suspect]
     Active Substance: ENFORTUMAB VEDOTIN-EJFV
     Dosage: =} 90 MG
     Route: 065
     Dates: start: 20240314
  10. PADCEV [Suspect]
     Active Substance: ENFORTUMAB VEDOTIN-EJFV
     Dosage: =} 75 MG
     Route: 065
     Dates: start: 20240321
  11. PADCEV [Suspect]
     Active Substance: ENFORTUMAB VEDOTIN-EJFV
     Dosage: =} 75 MG
     Route: 065
     Dates: start: 20240411
  12. PADCEV [Suspect]
     Active Substance: ENFORTUMAB VEDOTIN-EJFV
     Dosage: =} 60 MG
     Route: 065
     Dates: start: 20240516
  13. PADCEV [Suspect]
     Active Substance: ENFORTUMAB VEDOTIN-EJFV
     Dosage: =} 60 MG
     Route: 065
     Dates: start: 20240523
  14. PADCEV [Suspect]
     Active Substance: ENFORTUMAB VEDOTIN-EJFV
     Dosage: =} 60 MG
     Route: 065
     Dates: start: 20240606
  15. PADCEV [Suspect]
     Active Substance: ENFORTUMAB VEDOTIN-EJFV
     Dosage: =} 60 MG
     Route: 065
     Dates: start: 20240613
  16. PADCEV [Suspect]
     Active Substance: ENFORTUMAB VEDOTIN-EJFV
     Dosage: =} 60 MG
     Route: 065
     Dates: start: 20240627
  17. PADCEV [Suspect]
     Active Substance: ENFORTUMAB VEDOTIN-EJFV
     Dosage: =} 90 MG
     Route: 065
     Dates: start: 20240704
  18. PADCEV [Suspect]
     Active Substance: ENFORTUMAB VEDOTIN-EJFV
     Dosage: =} 90 MG
     Route: 065
     Dates: start: 20240718

REACTIONS (3)
  - Acute respiratory failure [Fatal]
  - Septic shock [Fatal]
  - Upper gastrointestinal haemorrhage [Unknown]

NARRATIVE: CASE EVENT DATE: 20240101
